FAERS Safety Report 7932962-X (Version None)
Quarter: 2011Q4

REPORT INFORMATION
  Report Type: 
  Country: None (occurrence: None)
  Receive Date: 20111122
  Receipt Date: 20111115
  Transmission Date: 20120403
  Serious: No
  Sender: FDA-Public Use
  Company Number: US-PFIZER INC-2011280252

PATIENT
  Sex: Female
  Weight: 88.435 kg

DRUGS (12)
  1. PREVACID [Concomitant]
     Dosage: 30 MG, 1X/DAY
  2. ASPIRIN [Concomitant]
     Dosage: 81 MG, 1X/DAY
  3. CRESTOR [Concomitant]
     Dosage: 10 MG, 1X/DAY
  4. REVATIO [Suspect]
     Indication: PULMONARY HYPERTENSION
     Dosage: 20 MG, 3X/DAY
     Route: 048
     Dates: start: 20090503
  5. CO-Q-10 [Concomitant]
     Dosage: 100 MG, 1X/DAY
  6. POTASSIUM [Concomitant]
     Dosage: 20 MEQ, 1X/DAY
  7. BOSENTAN [Concomitant]
     Dosage: 62.5 MG, 2X/DAY
  8. COUMADIN [Concomitant]
     Dosage: UNK
  9. IRON [Concomitant]
     Dosage: 325 MG, 2X/DAY
  10. LASIX [Concomitant]
     Dosage: 40 MG, 1X/DAY
  11. LEVOTHYROXINE [Concomitant]
     Dosage: 50 UG, 1X/DAY
  12. ENALAPRIL [Concomitant]
     Dosage: 2.5 MG, 2X/DAY

REACTIONS (1)
  - HOT FLUSH [None]
